FAERS Safety Report 4436433-7 (Version None)
Quarter: 2004Q3

REPORT INFORMATION
  Report Type: 
  Country: None (occurrence: None)
  Receive Date: 20040830
  Receipt Date: 20040512
  Transmission Date: 20050211
  Serious: No
  Sender: FDA-Public Use
  Company Number: US-BRISTOL-MYERS SQUIBB COMPANY-12585055

PATIENT
  Age: 14 Year
  Sex: Male
  Weight: 79 kg

DRUGS (6)
  1. ABILIFY [Suspect]
     Indication: OBSESSIVE-COMPULSIVE DISORDER
     Dosage: LOWER DOSE AT INITIATION, INCREASED TO 30 MG/DAY
     Route: 048
     Dates: start: 20030501
  2. ABILIFY [Suspect]
     Indication: PSYCHOTIC DISORDER
     Dosage: LOWER DOSE AT INITIATION, INCREASED TO 30 MG/DAY
     Route: 048
     Dates: start: 20030501
  3. COENZYME Q10 [Concomitant]
  4. CONCERTA [Concomitant]
  5. ZOLOFT [Concomitant]
  6. DEPAKOTE [Concomitant]

REACTIONS (2)
  - URINE ANALYSIS ABNORMAL [None]
  - WEIGHT INCREASED [None]
